FAERS Safety Report 9783037 (Version 1)
Quarter: 2013Q4

REPORT INFORMATION
  Report Type: Spontaneous
  Country: US (occurrence: None)
  Receive Date: 20131224
  Receipt Date: 20131224
  Transmission Date: 20140711
  Serious: Yes (Other)
  Sender: FDA-Public Use
  Company Number: None

PATIENT
  Age: 48 Year
  Sex: Female
  Weight: 214 kg

DRUGS (1)
  1. LEVAQUIN [Suspect]
     Indication: SINUSITIS
     Dosage: TAKEN BY MOUTH
     Route: 048
     Dates: start: 20131220, end: 20131223

REACTIONS (3)
  - Tendon disorder [None]
  - Headache [None]
  - Heart rate increased [None]
